FAERS Safety Report 10506984 (Version 1)
Quarter: 2014Q4

REPORT INFORMATION
  Report Type: Spontaneous
  Country: US (occurrence: None)
  Receive Date: 20141007
  Receipt Date: 20141007
  Transmission Date: 20150528
  Serious: No
  Sender: FDA-Public Use
  Company Number: 2014-00086

PATIENT
  Age: 28 Year
  Sex: Male
  Weight: 88 kg

DRUGS (4)
  1. MULTIVITIAMIN DAILY [Concomitant]
  2. FISH OIL SUPPLEMENT DAILY [Concomitant]
  3. ZICAM COLD REMEDY [Suspect]
     Active Substance: ZINC ACETATE\ZINC GLUCONATE
     Indication: INFLUENZA
     Dosage: 2-4 SPRAYS
     Route: 048
     Dates: start: 20140925
  4. ZICAM COLD REMEDY [Suspect]
     Active Substance: ZINC ACETATE\ZINC GLUCONATE
     Indication: NASOPHARYNGITIS
     Dosage: 2-4 SPRAYS
     Route: 048
     Dates: start: 20140925

REACTIONS (3)
  - Paraesthesia [None]
  - Anosmia [None]
  - Paraesthesia oral [None]

NARRATIVE: CASE EVENT DATE: 20140926
